FAERS Safety Report 12457529 (Version 1)
Quarter: 2016Q2

REPORT INFORMATION
  Report Type: Spontaneous
  Country: US (occurrence: US)
  Receive Date: 20160610
  Receipt Date: 20160610
  Transmission Date: 20160815
  Serious: Yes (Hospitalization, Disabling, Other)
  Sender: FDA-Public Use
  Company Number: US-BAUSCH-BL-2016-013638

PATIENT
  Age: 68 Year
  Sex: Male

DRUGS (2)
  1. DILTIAZEM [Suspect]
     Active Substance: DILTIAZEM
     Indication: HYPERTENSION
     Route: 065
  2. COLCHICINE. [Suspect]
     Active Substance: COLCHICINE
     Indication: GOUT
     Route: 065

REACTIONS (4)
  - Acute prerenal failure [Unknown]
  - Dehydration [Unknown]
  - Diarrhoea [Recovered/Resolved]
  - Myositis [Recovering/Resolving]
